FAERS Safety Report 12363624 (Version 1)
Quarter: 2016Q2

REPORT INFORMATION
  Report Type: Spontaneous
  Country: US (occurrence: US)
  Receive Date: 20160512
  Receipt Date: 20160512
  Transmission Date: 20160815
  Serious: No
  Sender: FDA-Public Use
  Company Number: US-UCBSA-2016000470

PATIENT
  Age: 52 Year
  Sex: Female
  Weight: 88 kg

DRUGS (9)
  1. CIMZIA [Suspect]
     Active Substance: CERTOLIZUMAB PEGOL
     Indication: RHEUMATOID ARTHRITIS
     Dosage: 400 MG, EV 2 WEEKS(QOW)
     Route: 058
     Dates: start: 201510, end: 201510
  2. ACETAMINOPHEN\HYDROCODONE BITARTRATE [Concomitant]
     Active Substance: ACETAMINOPHEN\HYDROCODONE BITARTRATE
     Indication: ARTHRALGIA
     Dosage: 7.5/325MG
     Route: 048
  3. HUMIRA [Suspect]
     Active Substance: ADALIMUMAB
     Indication: RHEUMATOID ARTHRITIS
     Dosage: 1 DF, EV 2 WEEKS(QOW)
     Route: 058
     Dates: end: 201510
  4. GEMFIBROZIL. [Concomitant]
     Active Substance: GEMFIBROZIL
     Indication: BLOOD CHOLESTEROL INCREASED
     Dosage: 600 MG, 2X/DAY (BID)
  5. LISINOPRIL. [Concomitant]
     Active Substance: LISINOPRIL
     Indication: HYPERTENSION
     Dosage: 20 MG, ONCE DAILY (QD)
     Route: 048
  6. LEVOTHYROXINE. [Concomitant]
     Active Substance: LEVOTHYROXINE
     Indication: HYPOTHYROIDISM
     Dosage: 100 ?G, ONCE DAILY (QD)
     Route: 048
  7. CYMBALTA [Concomitant]
     Active Substance: DULOXETINE HYDROCHLORIDE
     Indication: ARTHRALGIA
     Dosage: , AS NEEDED (PRN)
     Route: 048
  8. HUMIRA [Suspect]
     Active Substance: ADALIMUMAB
     Dosage: 1 DF, EV 2 WEEKS(QOW)
     Route: 058
     Dates: start: 201512
  9. GABAPENTIN. [Concomitant]
     Active Substance: GABAPENTIN
     Indication: GASTRIC DISORDER
     Dosage: 300 MG, AS NEEDED (PRN)
     Route: 048

REACTIONS (3)
  - Drug hypersensitivity [Unknown]
  - Urticaria [Recovered/Resolved]
  - Contusion [Unknown]

NARRATIVE: CASE EVENT DATE: 201510
